FAERS Safety Report 14380103 (Version 1)
Quarter: 2018Q1

REPORT INFORMATION
  Report Type: Spontaneous
  Country: US (occurrence: US)
  Receive Date: 20180111
  Receipt Date: 20180111
  Transmission Date: 20180509
  Serious: Yes (Other)
  Sender: FDA-Public Use
  Company Number: None

PATIENT
  Age: 28 Year
  Sex: Female
  Weight: 53.9 kg

DRUGS (1)
  1. NUCALA [Suspect]
     Active Substance: MEPOLIZUMAB
     Indication: ASTHMA
     Dosage: ?          OTHER FREQUENCY:ONCE;?
     Route: 058
     Dates: start: 20171213, end: 20171213

REACTIONS (10)
  - Anxiety [None]
  - Cough [None]
  - Self-medication [None]
  - Dyspnoea [None]
  - Hangover [None]
  - Nausea [None]
  - Headache [None]
  - Hypersensitivity [None]
  - Blood pressure decreased [None]
  - Fatigue [None]

NARRATIVE: CASE EVENT DATE: 20171213
